FAERS Safety Report 14114530 (Version 2)
Quarter: 2017Q4

REPORT INFORMATION
  Report Type: Spontaneous
  Country: US (occurrence: US)
  Receive Date: 20171023
  Receipt Date: 20171124
  Transmission Date: 20180321
  Serious: No
  Sender: FDA-Public Use
  Company Number: US-PFIZER INC-2017454154

PATIENT
  Age: 81 Year
  Sex: Male
  Weight: 70 kg

DRUGS (1)
  1. ADVIL [Suspect]
     Active Substance: IBUPROFEN
     Indication: BACK PAIN
     Dosage: 200 MG, AS NEEDED
     Route: 048
     Dates: end: 20171017

REACTIONS (4)
  - Throat irritation [Recovered/Resolved]
  - Productive cough [Recovering/Resolving]
  - Poor quality drug administered [Recovering/Resolving]
  - Product solubility abnormal [Recovering/Resolving]

NARRATIVE: CASE EVENT DATE: 20171017
